FAERS Safety Report 8250262-8 (Version None)
Quarter: 2012Q2

REPORT INFORMATION
  Report Type: 
  Country: None (occurrence: None)
  Receive Date: 20120402
  Receipt Date: 20120323
  Transmission Date: 20120825
  Serious: Yes (Hospitalization)
  Sender: FDA-Public Use
  Company Number: US-US-EMD SERONO, INC.-7121480

PATIENT
  Sex: Female
  Weight: 64 kg

DRUGS (6)
  1. NEURONTIN [Concomitant]
     Indication: PRODUCT USED FOR UNKNOWN INDICATION
  2. REBIF [Suspect]
     Route: 058
  3. PROZAC [Concomitant]
     Indication: PRODUCT USED FOR UNKNOWN INDICATION
  4. LYRICA [Concomitant]
     Indication: PRODUCT USED FOR UNKNOWN INDICATION
  5. NORTRIPTYLINE HCL [Concomitant]
     Indication: PRODUCT USED FOR UNKNOWN INDICATION
  6. REBIF [Suspect]
     Indication: MULTIPLE SCLEROSIS
     Dates: start: 20100314

REACTIONS (11)
  - SPLENIC RUPTURE [None]
  - AMNESIA [None]
  - TRAUMATIC LIVER INJURY [None]
  - INJECTION SITE ERYTHEMA [None]
  - RIB FRACTURE [None]
  - WHITE BLOOD CELL COUNT DECREASED [None]
  - CRANIOCEREBRAL INJURY [None]
  - TRAUMATIC RENAL INJURY [None]
  - ROAD TRAFFIC ACCIDENT [None]
  - FALL [None]
  - FOOT FRACTURE [None]
